FAERS Safety Report 17678153 (Version 6)
Quarter: 2020Q3

REPORT INFORMATION
  Report Type: Report from Study
  Country: None (occurrence: US)
  Receive Date: 20200417
  Receipt Date: 20200827
  Transmission Date: 20201102
  Serious: Yes (Hospitalization)
  Sender: FDA-Public Use
  Company Number: US-ABBVIE-20K-163-3368098-00

PATIENT
  Sex: Female
  Weight: 99.88 kg

DRUGS (4)
  1. LEVEMIR [Concomitant]
     Active Substance: INSULIN DETEMIR
     Indication: TYPE 2 DIABETES MELLITUS
  2. TRULICITY [Concomitant]
     Active Substance: DULAGLUTIDE
     Indication: TYPE 2 DIABETES MELLITUS
  3. HUMIRA [Suspect]
     Active Substance: ADALIMUMAB
     Indication: RHEUMATOID ARTHRITIS
     Route: 058
     Dates: start: 20190805, end: 20200302
  4. HUMIRA [Suspect]
     Active Substance: ADALIMUMAB
     Indication: RHEUMATOID ARTHRITIS
     Route: 058
     Dates: start: 20200623

REACTIONS (19)
  - Joint swelling [Recovering/Resolving]
  - Insomnia [Recovering/Resolving]
  - Pain [Unknown]
  - Pleurisy [Recovered/Resolved]
  - Pneumonia [Recovered/Resolved]
  - Gait disturbance [Unknown]
  - Injection site erythema [Recovered/Resolved]
  - Injection site pruritus [Recovered/Resolved]
  - Arthralgia [Unknown]
  - Cough [Recovering/Resolving]
  - Muscular weakness [Recovering/Resolving]
  - Pain in extremity [Unknown]
  - Fatigue [Recovering/Resolving]
  - Pleurisy [Recovered/Resolved]
  - Joint stiffness [Recovering/Resolving]
  - Illness [Unknown]
  - Depressed mood [Recovering/Resolving]
  - Impaired self-care [Unknown]
  - Loss of personal independence in daily activities [Recovering/Resolving]

NARRATIVE: CASE EVENT DATE: 2020
